FAERS Safety Report 4318137-4 (Version None)
Quarter: 2004Q1

REPORT INFORMATION
  Report Type: 
  Country: None (occurrence: None)
  Receive Date: 20040317
  Receipt Date: 20040309
  Transmission Date: 20041129
  Serious: Yes (Hospitalization)
  Sender: FDA-Public Use
  Company Number: US-GLAXOSMITHKLINE-A0501951A

PATIENT
  Age: 38 Year
  Sex: Female

DRUGS (1)
  1. PAXIL [Suspect]
     Indication: DEPRESSION
     Route: 048

REACTIONS (5)
  - ANGER [None]
  - ENERGY INCREASED [None]
  - INSOMNIA [None]
  - PERSONALITY DISORDER [None]
  - PSYCHOMOTOR HYPERACTIVITY [None]
